FAERS Safety Report 8158528-7 (Version None)
Quarter: 2012Q1

REPORT INFORMATION
  Report Type: 
  Country: None (occurrence: None)
  Receive Date: 20120223
  Receipt Date: 20120215
  Transmission Date: 20120608
  Serious: Yes (Other)
  Sender: FDA-Public Use
  Company Number: US-SP-2012-02027

PATIENT
  Sex: Female

DRUGS (5)
  1. DIOVAN [Concomitant]
  2. TUBERSOL [Suspect]
     Indication: IMMUNISATION
     Route: 023
     Dates: start: 20120214, end: 20120214
  3. ARMOR [Concomitant]
  4. LEVOTHYROXINE SODIUM [Concomitant]
  5. THYROID MED [Concomitant]

REACTIONS (5)
  - RASH MACULAR [None]
  - ACCIDENTAL EXPOSURE [None]
  - DYSPNOEA [None]
  - PRURITUS GENERALISED [None]
  - ERYTHEMA [None]
